FAERS Safety Report 4378561-0 (Version None)
Quarter: 2004Q2

REPORT INFORMATION
  Report Type: 
  Country: None (occurrence: None)
  Receive Date: 20040616
  Receipt Date: 20040602
  Transmission Date: 20050107
  Serious: Yes (Hospitalization)
  Sender: FDA-Public Use
  Company Number: AU-GLAXOSMITHKLINE-B0335131A

PATIENT
  Sex: Female

DRUGS (3)
  1. ZYBAN [Suspect]
     Route: 048
     Dates: start: 20040101
  2. ATACAND [Concomitant]
     Indication: HYPERTENSION
  3. LIPEX [Concomitant]
     Indication: HYPERTENSION

REACTIONS (4)
  - CEREBROVASCULAR ACCIDENT [None]
  - DELIRIUM [None]
  - HEADACHE [None]
  - ILL-DEFINED DISORDER [None]
